FAERS Safety Report 24150854 (Version 1)
Quarter: 2024Q3

REPORT INFORMATION
  Report Type: Spontaneous
  Country: IE (occurrence: IE)
  Receive Date: 20240730
  Receipt Date: 20240730
  Transmission Date: 20241017
  Serious: Yes (Death, Hospitalization)
  Sender: STRIDES
  Company Number: IE-STRIDES ARCOLAB LIMITED-2024SP009286

PATIENT
  Age: 8 Decade
  Sex: Female

DRUGS (44)
  1. FUROSEMIDE [Suspect]
     Active Substance: FUROSEMIDE
     Indication: Increased upper airway secretion
     Dosage: 40 MILLIGRAM, ON DAY?8, 10
     Route: 065
  2. HALOPERIDOL [Suspect]
     Active Substance: HALOPERIDOL
     Indication: Terminal agitation
     Dosage: 1 MILLIGRAM, INFUSION, ON DAY?2 OF ADMISSION
     Route: 058
  3. HALOPERIDOL [Suspect]
     Active Substance: HALOPERIDOL
     Dosage: 2 MILLIGRAM, INFUSION, ON DAY?3, 4, 5, 6, 7 OF ADMISSION
     Route: 058
  4. HALOPERIDOL [Suspect]
     Active Substance: HALOPERIDOL
     Dosage: 2 MILLIGRAM, ON DAY 8, 9, 10
     Route: 065
  5. MORPHINE SULFATE [Suspect]
     Active Substance: MORPHINE SULFATE
     Indication: Pain management
     Dosage: 80 MILLIGRAM, INFUSION, ON DAY?8 AND ON DAY?9
     Route: 058
  6. MORPHINE SULFATE [Suspect]
     Active Substance: MORPHINE SULFATE
     Dosage: 110 MILLIGRAM, INFUSION, ON DAY 10 OF ADMISSION
     Route: 058
  7. MORPHINE SULFATE [Suspect]
     Active Substance: MORPHINE SULFATE
     Dosage: 160 MILLIGRAM, INFUSION, ON DAY?11, 12, 13
     Route: 058
  8. MORPHINE SULFATE [Suspect]
     Active Substance: MORPHINE SULFATE
     Dosage: 5 MILLIGRAM, ON DAY?4
     Route: 065
  9. MORPHINE SULFATE [Suspect]
     Active Substance: MORPHINE SULFATE
     Dosage: 22.5 MILLIGRAM, ON DAY?5
     Route: 065
  10. MORPHINE SULFATE [Suspect]
     Active Substance: MORPHINE SULFATE
     Dosage: 27.5 MILLIGRAM, ON DAY?6
     Route: 065
  11. MORPHINE SULFATE [Suspect]
     Active Substance: MORPHINE SULFATE
     Dosage: 40 MILLIGRAM, ON DAY?7
     Route: 065
  12. MORPHINE SULFATE [Suspect]
     Active Substance: MORPHINE SULFATE
     Dosage: 15 MILLIGRAM, ON DAY?8, 10
     Route: 065
  13. MORPHINE SULFATE [Suspect]
     Active Substance: MORPHINE SULFATE
     Dosage: 30 MILLIGRAM, ON DAY?9
     Route: 065
  14. MORPHINE SULFATE [Suspect]
     Active Substance: MORPHINE SULFATE
     Dosage: 55 MILLIGRAM, ON DAY?11
     Route: 065
  15. MORPHINE SULFATE [Suspect]
     Active Substance: MORPHINE SULFATE
     Dosage: 35 MILLIGRAM, ON DAY?12
     Route: 065
  16. MORPHINE SULFATE [Suspect]
     Active Substance: MORPHINE SULFATE
     Dosage: 10 MILLIGRAM, ON DAY?13
     Route: 065
  17. DICLOFENAC [Suspect]
     Active Substance: DICLOFENAC
     Indication: Analgesic intervention supportive therapy
     Dosage: 150 MILLIGRAM, ON DAY?12
     Route: 065
  18. PHENOBARBITAL [Suspect]
     Active Substance: PHENOBARBITAL
     Indication: Terminal agitation
     Dosage: 600 MILLIGRAM, INFUSION
     Route: 058
  19. PHENOBARBITAL [Suspect]
     Active Substance: PHENOBARBITAL
     Dosage: 400 MILLIGRAM
     Route: 065
  20. SCOPOLAMINE HYDROBROMIDE [Suspect]
     Active Substance: SCOPOLAMINE HYDROBROMIDE
     Indication: Increased upper airway secretion
     Dosage: 2.4 MILLIGRAM, ON DAY?10 OF ADMISSION
     Route: 058
  21. SCOPOLAMINE HYDROBROMIDE [Suspect]
     Active Substance: SCOPOLAMINE HYDROBROMIDE
     Dosage: 40 MILLIGRAM, ON DAY 9
     Route: 065
  22. SCOPOLAMINE HYDROBROMIDE [Suspect]
     Active Substance: SCOPOLAMINE HYDROBROMIDE
     Dosage: 80 MILLIGRAM, ON DAY 10
     Route: 065
  23. SCOPOLAMINE HYDROBROMIDE [Suspect]
     Active Substance: SCOPOLAMINE HYDROBROMIDE
     Dosage: 20 MILLIGRAM, ON DAY 11
     Route: 065
  24. SCOPOLAMINE HYDROBROMIDE [Suspect]
     Active Substance: SCOPOLAMINE HYDROBROMIDE
     Dosage: 60 MILLIGRAM, ON DAY 12
     Route: 065
  25. GLYCOPYRROLATE [Suspect]
     Active Substance: GLYCOPYRROLATE
     Indication: Increased upper airway secretion
     Dosage: 2.4 MILLIGRAM, ON DAY?8 AND ON DAY?9
     Route: 058
  26. GLYCOPYRROLATE [Suspect]
     Active Substance: GLYCOPYRROLATE
     Dosage: 3.6 MILLIGRAM, ON DAY?11, 12, 13
     Route: 058
  27. GLYCOPYRROLATE [Suspect]
     Active Substance: GLYCOPYRROLATE
     Dosage: 0.6 MILLIGRAM, ON DAY?11
     Route: 065
  28. PROCYCLIDINE [Suspect]
     Active Substance: PROCYCLIDINE
     Indication: Akathisia
     Dosage: 5 MILLIGRAM, ON DAY?11
     Route: 030
  29. ALFENTANIL [Suspect]
     Active Substance: ALFENTANIL
     Indication: Analgesic therapy
     Dosage: 1 MILLIGRAM, ON DAY?1 OF ADMISSION
     Route: 058
  30. ALFENTANIL [Suspect]
     Active Substance: ALFENTANIL
     Dosage: 1.6 MILLIGRAM, DAY?2 OF ADMISSION
     Route: 058
  31. ALFENTANIL [Suspect]
     Active Substance: ALFENTANIL
     Dosage: 2.5 MILLIGRAM, DAY?3 OF ADMISSION
     Route: 058
  32. ALFENTANIL [Suspect]
     Active Substance: ALFENTANIL
     Dosage: 3.5 MILLIGRAM, ON DAY?4 AND ON DAY?5 BOTH
     Route: 058
  33. ALFENTANIL [Suspect]
     Active Substance: ALFENTANIL
     Dosage: 4.5 MILLIGRAM
     Route: 058
  34. LEVOMEPROMAZINE HYDROCHLORIDE [Suspect]
     Active Substance: LEVOMEPROMAZINE HYDROCHLORIDE
     Indication: Nausea
     Dosage: 25 MILLIGRAM, ON DAY?1, 2, 3   OF ADMISSION
     Route: 065
  35. LEVOMEPROMAZINE HYDROCHLORIDE [Suspect]
     Active Substance: LEVOMEPROMAZINE HYDROCHLORIDE
     Indication: Vomiting
     Dosage: 6.25 MILLIGRAM, ON DAY?11
     Route: 065
  36. LEVOMEPROMAZINE HYDROCHLORIDE [Suspect]
     Active Substance: LEVOMEPROMAZINE HYDROCHLORIDE
     Dosage: 12.5 MILLIGRAM, ON DAY?12
     Route: 065
  37. OCTREOTIDE [Suspect]
     Active Substance: OCTREOTIDE\OCTREOTIDE ACETATE
     Indication: Palliative care
     Dosage: 0.5 MILLIGRAM, ON DAY?1, 2 OF ADMISSION
     Route: 058
  38. OCTREOTIDE [Suspect]
     Active Substance: OCTREOTIDE\OCTREOTIDE ACETATE
     Dosage: 1 MILLIGRAM, ON DAY?3, 4, 5, 6, 7, 8, 9, 10 OF ADMISSION
     Route: 058
  39. MIDAZOLAM [Suspect]
     Active Substance: MIDAZOLAM
     Indication: Palliative care
     Dosage: 10 MILLIGRAM, ON DAY?8 AND ON DAY?9, 12
     Route: 058
  40. MIDAZOLAM [Suspect]
     Active Substance: MIDAZOLAM
     Dosage: 20 MILLIGRAM, ON DAY 10 OF ADMISSION
     Route: 058
  41. MIDAZOLAM [Suspect]
     Active Substance: MIDAZOLAM
     Dosage: 40 MILLIGRAM, ON DAY?11, 12, 13
     Route: 058
  42. MIDAZOLAM [Suspect]
     Active Substance: MIDAZOLAM
     Dosage: 5 MILLIGRAM, ON DAY 8, 10
     Route: 065
  43. MIDAZOLAM [Suspect]
     Active Substance: MIDAZOLAM
     Dosage: 10 MILLIGRAM, ON DAY?9, 12
     Route: 065
  44. MIDAZOLAM [Suspect]
     Active Substance: MIDAZOLAM
     Dosage: 15 MILLIGRAM, ON DAY?11
     Route: 065

REACTIONS (4)
  - Death [Fatal]
  - Condition aggravated [Unknown]
  - Therapy non-responder [Unknown]
  - Off label use [Unknown]
